FAERS Safety Report 4882550-7 (Version None)
Quarter: 2006Q1

REPORT INFORMATION
  Report Type: 
  Country: None (occurrence: None)
  Receive Date: 20060113
  Receipt Date: 20051229
  Transmission Date: 20060701
  Serious: Yes (Life-Threatening, Hospitalization, Other)
  Sender: FDA-Public Use
  Company Number: 2005-02102

PATIENT
  Age: 54 Year
  Sex: Female

DRUGS (4)
  1. VELCADE [Suspect]
     Indication: WALDENSTROM'S MACROGLOBULINAEMIA
     Dosage: SEE IMAGE
     Route: 042
     Dates: start: 20040312, end: 20040301
  2. VELCADE [Suspect]
     Indication: WALDENSTROM'S MACROGLOBULINAEMIA
     Dosage: SEE IMAGE
     Route: 042
     Dates: start: 20040405
  3. ZYVOX [Concomitant]
  4. ZOMETA [Concomitant]

REACTIONS (5)
  - BACK PAIN [None]
  - CHILLS [None]
  - PAIN [None]
  - URTICARIA [None]
  - VASCULITIS [None]
